FAERS Safety Report 6862751-9 (Version None)
Quarter: 2010Q3

REPORT INFORMATION
  Report Type: 
  Country: None (occurrence: None)
  Receive Date: 20100721
  Receipt Date: 20100716
  Transmission Date: 20110219
  Serious: Yes (Hospitalization)
  Sender: FDA-Public Use
  Company Number: IT-ROCHE-715570

PATIENT
  Sex: Female
  Weight: 59 kg

DRUGS (3)
  1. BEVACIZUMAB [Suspect]
     Dosage: FREQUENCY: DAY 1, 8 AND 15.  LAST DOSE PRIOR TO SAE: 23 JUNE 2010. TEMPORARILY INTERRUPTED.
     Route: 042
     Dates: start: 20100530, end: 20100712
  2. PACLITAXEL [Suspect]
     Dosage: FREQUENCY: DAY 1, 8 AND 15.  LAST DOSE PRIOR TO SAE: 07 JULY 2010.  TEMPORARILY INTERRUPTED.
     Route: 042
     Dates: start: 20100530, end: 20100712
  3. CARBOPLATIN [Suspect]
     Dosage: FREQUENCY: Q21.  LAST DOSE PRIOR TO SAE: 23 JUNE 2010.  TEMPORARILY INTERRUPTED.
     Route: 042
     Dates: start: 20100530, end: 20100712

REACTIONS (1)
  - GASTROINTESTINAL OBSTRUCTION [None]
